FAERS Safety Report 17449562 (Version 1)
Quarter: 2020Q1

REPORT INFORMATION
  Report Type: Spontaneous
  Country: FR (occurrence: FR)
  Receive Date: 20200224
  Receipt Date: 20200224
  Transmission Date: 20200409
  Serious: Yes (Death)
  Sender: FDA-Public Use
  Company Number: FR-ZYDUS-047612

PATIENT
  Age: 51 Year
  Sex: Female

DRUGS (3)
  1. TRAMADOL. [Suspect]
     Active Substance: TRAMADOL
     Indication: INTENTIONAL OVERDOSE
     Route: 065
     Dates: start: 201901, end: 201901
  2. BROMAZEPAM [Suspect]
     Active Substance: BROMAZEPAM
     Indication: INTENTIONAL OVERDOSE
     Route: 065
     Dates: start: 201901, end: 201901
  3. CYAMEMAZINE [Suspect]
     Active Substance: CYAMEMAZINE
     Indication: INTENTIONAL OVERDOSE
     Route: 065
     Dates: start: 201901, end: 201901

REACTIONS (2)
  - Drug use disorder [Fatal]
  - Intentional overdose [Fatal]

NARRATIVE: CASE EVENT DATE: 201901
